FAERS Safety Report 4833688-1 (Version None)
Quarter: 2005Q4

REPORT INFORMATION
  Report Type: 
  Country: None (occurrence: None)
  Receive Date: 20051114
  Receipt Date: 20051104
  Transmission Date: 20060501
  Serious: Yes (Other)
  Sender: FDA-Public Use
  Company Number: USA0511112790

PATIENT
  Age: 49 Year
  Sex: Female

DRUGS (3)
  1. ILETIN II [Suspect]
     Indication: DIABETES MELLITUS
     Dates: start: 19630101
  2. ILETIN I [Suspect]
     Indication: DIABETES MELLITUS
     Dosage: 25 U DAY
     Dates: start: 19630101
  3. MULTI-VITAMINS [Concomitant]

REACTIONS (5)
  - BLOOD GLUCOSE INCREASED [None]
  - EYE HAEMORRHAGE [None]
  - HYPOGLYCAEMIA [None]
  - RETINAL DETACHMENT [None]
  - VITREOUS FLOATERS [None]
